FAERS Safety Report 8359701-5 (Version None)
Quarter: 2012Q2

REPORT INFORMATION
  Report Type: 
  Country: None (occurrence: None)
  Receive Date: 20120515
  Receipt Date: 20120511
  Transmission Date: 20120825
  Serious: No
  Sender: FDA-Public Use
  Company Number: US-BAYER-2012-046946

PATIENT
  Sex: Female

DRUGS (3)
  1. BETASERON [Suspect]
     Indication: MULTIPLE SCLEROSIS
     Dosage: 0.25 MG, UNK
     Route: 058
  2. IBUPROFEN [Concomitant]
     Indication: INFLUENZA LIKE ILLNESS
  3. IBUPROFEN [Concomitant]
     Indication: PAIN

REACTIONS (5)
  - DECREASED INTEREST [None]
  - INFLUENZA LIKE ILLNESS [None]
  - BONE PAIN [None]
  - DYSPEPSIA [None]
  - NO ADVERSE EVENT [None]
